FAERS Safety Report 7409331-4 (Version None)
Quarter: 2011Q2

REPORT INFORMATION
  Report Type: 
  Country: None (occurrence: None)
  Receive Date: 20110412
  Receipt Date: 20110408
  Transmission Date: 20111010
  Serious: Yes (Death)
  Sender: FDA-Public Use
  Company Number: US-ASTRAZENECA-2011SE20145

PATIENT
  Age: 67 Year
  Sex: Female

DRUGS (11)
  1. EXELON [Concomitant]
  2. NAMENDA [Concomitant]
  3. BENZTROPINE [Concomitant]
  4. EMPIRIN [Concomitant]
  5. LORAZEPAN [Concomitant]
  6. ACTOS [Concomitant]
  7. ZYPREXA [Concomitant]
  8. HYALGAN [Concomitant]
  9. CRESTOR [Suspect]
     Indication: BLOOD CHOLESTEROL INCREASED
     Route: 048
  10. SINGULAIR [Concomitant]
  11. MIRTAZAPINE [Concomitant]

REACTIONS (1)
  - MYOCARDIAL INFARCTION [None]
